FAERS Safety Report 13925342 (Version 5)
Quarter: 2017Q4

REPORT INFORMATION
  Report Type: Spontaneous
  Country: US (occurrence: US)
  Receive Date: 20170831
  Receipt Date: 20171003
  Transmission Date: 20180320
  Serious: Yes (Hospitalization, Other)
  Sender: FDA-Public Use
  Company Number: US-JNJFOC-20170822912

PATIENT
  Age: 74 Year
  Sex: Male

DRUGS (2)
  1. METFORMIN [Concomitant]
     Active Substance: METFORMIN HYDROCHLORIDE
     Indication: DIABETES MELLITUS
     Route: 065
  2. LEVOFLOXACIN. [Suspect]
     Active Substance: LEVOFLOXACIN
     Indication: UPPER RESPIRATORY TRACT INFECTION
     Route: 065

REACTIONS (10)
  - Delirium [Recovered/Resolved]
  - Sinus tachycardia [Recovered/Resolved]
  - Toxicity to various agents [Recovered/Resolved]
  - Hypophagia [Recovered/Resolved]
  - Tremor [Recovered/Resolved]
  - Electrocardiogram QT prolonged [Recovered/Resolved]
  - Overdose [Recovered/Resolved]
  - Hypotension [Recovered/Resolved]
  - Mood altered [Recovered/Resolved]
  - Hypoglycaemia [Recovered/Resolved]
